FAERS Safety Report 7489157-6 (Version None)
Quarter: 2011Q2

REPORT INFORMATION
  Report Type: 
  Country: None (occurrence: None)
  Receive Date: 20110518
  Receipt Date: 20110509
  Transmission Date: 20111010
  Serious: Yes (Other)
  Sender: FDA-Public Use
  Company Number: JP-PURDUE-USA-2011-0068100

PATIENT
  Age: 64 Year
  Sex: Female
  Weight: 38.5 kg

DRUGS (2)
  1. OXYCODONE HCL [Suspect]
     Indication: PRODUCT USED FOR UNKNOWN INDICATION
     Dosage: 2.07 MG/KG, DAILY
  2. VORICONAZOLE [Interacting]
     Indication: PRODUCT USED FOR UNKNOWN INDICATION
     Dosage: 2.59 MG/KG, DAILY

REACTIONS (3)
  - DELIRIUM [None]
  - HYPOPNOEA [None]
  - DRUG INTERACTION [None]
